FAERS Safety Report 18700741 (Version 1)
Quarter: 2021Q1

REPORT INFORMATION
  Report Type: Spontaneous
  Country: US (occurrence: US)
  Receive Date: 20210105
  Receipt Date: 20210105
  Transmission Date: 20210419
  Serious: No
  Sender: FDA-Public Use
  Company Number: US-ALLERGAN-2008584US

PATIENT
  Sex: Female

DRUGS (2)
  1. TIMOLOL GEL SUSPENSION [Concomitant]
     Route: 047
  2. PRED MILD [Suspect]
     Active Substance: PREDNISOLONE ACETATE
     Indication: IRITIS
     Dosage: 2 GTT, QD
     Route: 047
     Dates: start: 202001

REACTIONS (2)
  - Accidental exposure to product [Unknown]
  - Product packaging quantity issue [Unknown]

NARRATIVE: CASE EVENT DATE: 202001
